FAERS Safety Report 9644865 (Version 2)
Quarter: 2013Q4

REPORT INFORMATION
  Report Type: Spontaneous
  Country: US (occurrence: US)
  Receive Date: 20131025
  Receipt Date: 20131025
  Transmission Date: 20140711
  Serious: Yes (Other)
  Sender: FDA-Public Use
  Company Number: US-SANOFI-AVENTIS-2013SA071418

PATIENT
  Age: 55 Year
  Sex: Female
  Weight: 82.55 kg

DRUGS (17)
  1. LANTUS SOLOSTAR [Suspect]
     Indication: TYPE 2 DIABETES MELLITUS
     Dosage: DOSE:15 UNIT(S)
     Route: 058
     Dates: start: 201210, end: 201307
  2. LANTUS SOLOSTAR [Suspect]
     Indication: TYPE 2 DIABETES MELLITUS
     Route: 058
     Dates: start: 20131015
  3. LANTUS SOLOSTAR [Suspect]
     Indication: TYPE 2 DIABETES MELLITUS
     Dosage: DOSE:10 UNIT(S)
     Route: 058
  4. LANTUS SOLOSTAR [Suspect]
     Indication: TYPE 2 DIABETES MELLITUS
     Dosage: DOSE:5 UNIT(S)
     Route: 058
     Dates: start: 20121024, end: 20130801
  5. SOLOSTAR [Concomitant]
     Indication: TYPE 2 DIABETES MELLITUS
     Dates: start: 201210, end: 20130708
  6. SOLOSTAR [Concomitant]
     Indication: TYPE 2 DIABETES MELLITUS
  7. SOLOSTAR [Concomitant]
     Indication: TYPE 2 DIABETES MELLITUS
  8. NOVOLOG MIX [Concomitant]
  9. PREDNISONE [Concomitant]
  10. DIAZEPAM [Concomitant]
  11. GLIPIZIDE [Concomitant]
  12. AZITHROMYCIN [Concomitant]
  13. IBUPROFEN [Concomitant]
  14. JANUVIA [Concomitant]
  15. NITROFURANTOIN [Concomitant]
  16. ATROPINE [Concomitant]
  17. CIPROFLOXACIN [Concomitant]

REACTIONS (13)
  - Cataract [Not Recovered/Not Resolved]
  - Vision blurred [Not Recovered/Not Resolved]
  - Retinal disorder [Unknown]
  - Haemorrhage [Unknown]
  - Hypertension [Recovered/Resolved]
  - Chest pain [Recovered/Resolved]
  - Chest discomfort [Recovering/Resolving]
  - Dyspepsia [Unknown]
  - Blood glucose increased [Unknown]
  - Dizziness [Recovered/Resolved]
  - Hyperhidrosis [Recovered/Resolved]
  - Tremor [Unknown]
  - Headache [Unknown]
